FAERS Safety Report 6398333-5 (Version None)
Quarter: 2009Q4

REPORT INFORMATION
  Report Type: 
  Country: None (occurrence: None)
  Receive Date: 20091013
  Receipt Date: 20090930
  Transmission Date: 20100525
  Serious: Yes (Other)
  Sender: FDA-Public Use
  Company Number: US-PFIZER INC-2009277651

PATIENT
  Sex: Female
  Weight: 54.422 kg

DRUGS (2)
  1. XANAX [Suspect]
     Indication: SLEEP DISORDER
     Route: 048
  2. PROPOFOL [Suspect]

REACTIONS (26)
  - AGEUSIA [None]
  - ALOPECIA [None]
  - AMNESIA [None]
  - AUTOIMMUNE DISORDER [None]
  - CATARACT [None]
  - DISTURBANCE IN ATTENTION [None]
  - DIZZINESS [None]
  - DYSGEUSIA [None]
  - DYSKINESIA [None]
  - ERYTHEMA [None]
  - FEELING COLD [None]
  - FEELING HOT [None]
  - HAIR GROWTH ABNORMAL [None]
  - HEARING IMPAIRED [None]
  - INSOMNIA [None]
  - LACUNAR INFARCTION [None]
  - MUSCLE ATROPHY [None]
  - MUSCLE SPASMS [None]
  - MUSCLE TWITCHING [None]
  - NAUSEA [None]
  - NEUROMYOPATHY [None]
  - PRURITUS [None]
  - SLEEP DISORDER [None]
  - TREMOR [None]
  - URINARY INCONTINENCE [None]
  - VITREOUS DETACHMENT [None]
